FAERS Safety Report 4834981-9 (Version None)
Quarter: 2005Q4

REPORT INFORMATION
  Report Type: 
  Country: None (occurrence: None)
  Receive Date: 20051114
  Receipt Date: 20051101
  Transmission Date: 20060501
  Serious: No
  Sender: FDA-Public Use
  Company Number: USA0507102710

PATIENT
  Sex: Male

DRUGS (3)
  1. HUMULIN N [Suspect]
     Indication: DIABETES MELLITUS
  2. ASPIRIN [Concomitant]
  3. ALLOPURINOL [Concomitant]

REACTIONS (6)
  - ACANTHOSIS [None]
  - BLOOD PRESSURE DIASTOLIC INCREASED [None]
  - GOUT [None]
  - OBESITY [None]
  - RASH [None]
  - URTICARIA [None]
